FAERS Safety Report 12098562 (Version 5)
Quarter: 2018Q1

REPORT INFORMATION
  Report Type: Spontaneous
  Country: IT (occurrence: IT)
  Receive Date: 20160222
  Receipt Date: 20180124
  Transmission Date: 20180508
  Serious: Yes (Death, Other)
  Sender: FDA-Public Use
  Company Number: IT-ROCHE-1712889

PATIENT
  Age: 68 Year
  Sex: Male

DRUGS (5)
  1. DELTACORTENE [Suspect]
     Active Substance: PREDNISONE
     Dosage: TAPERED DOSE
     Route: 048
  2. AZATHIOPRINE. [Suspect]
     Active Substance: AZATHIOPRINE
     Indication: PEMPHIGUS
     Dosage: FOR 2 MONTHS
     Route: 065
  3. IMMUNOGLOBULIN (IVIG) [Suspect]
     Active Substance: HUMAN IMMUNOGLOBULIN G
     Indication: PEMPHIGUS
     Dosage: FOR 5 DAYS
     Route: 041
  4. RITUXIMAB. [Suspect]
     Active Substance: RITUXIMAB
     Indication: PEMPHIGUS
     Dosage: PERIOD: 28 DAYS
     Route: 042
  5. DELTACORTENE [Suspect]
     Active Substance: PREDNISONE
     Indication: PEMPHIGUS
     Route: 048

REACTIONS (7)
  - Off label use [Unknown]
  - Pneumonia acinetobacter [Fatal]
  - Septic shock [Fatal]
  - Pemphigus [Not Recovered/Not Resolved]
  - Therapy partial responder [Unknown]
  - Kaposi^s sarcoma [Recovering/Resolving]
  - Intentional product use issue [Unknown]
